FAERS Safety Report 18576469 (Version 4)
Quarter: 2021Q1

REPORT INFORMATION
  Report Type: Spontaneous
  Country: US (occurrence: US)
  Receive Date: 20201203
  Receipt Date: 20210129
  Transmission Date: 20210419
  Serious: No
  Sender: FDA-Public Use
  Company Number: US-PFIZER INC-2020474866

PATIENT
  Age: 59 Year
  Sex: Female
  Weight: 60.78 kg

DRUGS (1)
  1. PREMPRO [Suspect]
     Active Substance: ESTROGENS, CONJUGATED\MEDROXYPROGESTERONE ACETATE
     Indication: HOT FLUSH
     Dosage: UNK, 1X/DAY  (0.45MG/1.5MG ONCE DAILY BY MOUTH)
     Route: 048

REACTIONS (1)
  - Therapeutic product effect delayed [Unknown]
